FAERS Safety Report 8541273-3 (Version None)
Quarter: 2012Q3

REPORT INFORMATION
  Report Type: 
  Country: None (occurrence: None)
  Receive Date: 20120726
  Receipt Date: 20120713
  Transmission Date: 20120928
  Serious: No
  Sender: FDA-Public Use
  Company Number: US-ASTRAZENECA-2009UW07772

PATIENT
  Age: 66 Year
  Sex: Female
  Weight: 53.5 kg

DRUGS (7)
  1. ACTONEL [Concomitant]
  2. FISH OIL [Concomitant]
  3. CRESTOR [Suspect]
     Indication: BLOOD CHOLESTEROL INCREASED
     Route: 048
     Dates: start: 20090209
  4. UBIQUINOL [Concomitant]
  5. FLAXSEED [Concomitant]
  6. HYDROCHLOROTHIAZIDE [Concomitant]
     Indication: BLOOD PRESSURE ABNORMAL
  7. ASPIRIN [Concomitant]
     Indication: BLOOD PRESSURE ABNORMAL

REACTIONS (8)
  - THERAPEUTIC RESPONSE UNEXPECTED [None]
  - ARTHRALGIA [None]
  - HYPERTENSION [None]
  - HIGH DENSITY LIPOPROTEIN DECREASED [None]
  - WEIGHT FLUCTUATION [None]
  - FLUID RETENTION [None]
  - BODY HEIGHT DECREASED [None]
  - BONE LOSS [None]
